FAERS Safety Report 9149158 (Version 4)
Quarter: 2013Q3

REPORT INFORMATION
  Report Type: Spontaneous
  Country: FR (occurrence: FR)
  Receive Date: 20130308
  Receipt Date: 20130923
  Transmission Date: 20140515
  Serious: Yes (Hospitalization, Other)
  Sender: FDA-Public Use
  Company Number: FR-PFIZER INC-2013074158

PATIENT
  Age: 88 Year
  Sex: Male

DRUGS (17)
  1. XALKORI [Suspect]
     Indication: NON-SMALL CELL LUNG CANCER
     Dosage: 200 MG, 1X/DAY
     Route: 048
     Dates: start: 20130108
  2. XALKORI [Suspect]
     Dosage: 250 MG, 2X/DAY
     Route: 048
     Dates: end: 20130118
  3. ROCEPHINE [Suspect]
     Dosage: 2 G, 1X/DAY
     Route: 042
     Dates: start: 20130114, end: 20130122
  4. DEBRIDAT [Concomitant]
     Dosage: 6 DF, 1X/DAY
     Route: 042
     Dates: start: 20130118
  5. FLAGYL [Concomitant]
     Dosage: 500 MG, 3X/DAY
     Route: 042
     Dates: start: 20130118
  6. PERFALGAN [Concomitant]
     Dosage: 1 G, EVERY 6 HOURS
     Dates: start: 20130114
  7. PRIMPERAN [Concomitant]
     Dosage: 100 MG EVERY 8 HOURS (3X/DAY)
     Dates: start: 20130114, end: 20130116
  8. ACTRAPID [Concomitant]
     Dosage: 4 IU, EVERY HOUR
     Dates: start: 20130114
  9. CALCIPARIN [Concomitant]
     Dosage: 0.2 ML, 2X/DAY
     Route: 042
     Dates: start: 20130115
  10. GENTAMICIN [Concomitant]
     Dosage: 1 DF, 1X/DAY
     Route: 042
     Dates: start: 20130118, end: 20130118
  11. SPASFON [Concomitant]
     Dosage: 2
     Route: 042
     Dates: start: 20130118
  12. INEXIUM [Concomitant]
     Dosage: 20 MG, 1X/DAY
     Route: 042
     Dates: start: 20130118
  13. COAPROVEL [Concomitant]
     Dosage: 1 DF, 1X/DAY
     Route: 048
     Dates: end: 20130114
  14. VERAPAMIL HYDROCHLORIDE [Concomitant]
     Dosage: 1 DF, 1X/DAY
     Route: 048
     Dates: end: 20130117
  15. KARDEGIC [Concomitant]
     Dosage: 1 DF, 1X/DAY
     Route: 048
     Dates: end: 20130114
  16. CRESTOR [Concomitant]
     Dosage: 1 DF, 1X/DAY
     Route: 048
     Dates: end: 20130114
  17. OMEPRAZOLE [Concomitant]
     Dosage: 1 DF, 1X/DAY
     Route: 048
     Dates: end: 20130114

REACTIONS (7)
  - Hepatocellular injury [Recovered/Resolved]
  - Cholestasis [Recovering/Resolving]
  - Acute abdomen [Recovering/Resolving]
  - Sepsis [Recovering/Resolving]
  - Rectal haemorrhage [Unknown]
  - Haemodynamic instability [Unknown]
  - Anaemia [Unknown]
